FAERS Safety Report 8266324-5 (Version None)
Quarter: 2012Q2

REPORT INFORMATION
  Report Type: 
  Country: None (occurrence: None)
  Receive Date: 20120406
  Receipt Date: 20120402
  Transmission Date: 20120825
  Serious: Yes (Other)
  Sender: FDA-Public Use
  Company Number: GB-ABBOTT-12P-167-0915813-00

PATIENT
  Age: 3 Year
  Sex: Male

DRUGS (4)
  1. VALPROIC ACID [Suspect]
     Indication: EPILEPSY
     Dosage: UNKNOWN
     Route: 065
     Dates: start: 20120302
  2. CLARITHROMYCIN [Concomitant]
     Indication: PRODUCT USED FOR UNKNOWN INDICATION
     Dates: start: 20120302
  3. ACYCLOVIR [Concomitant]
     Indication: PRODUCT USED FOR UNKNOWN INDICATION
     Dates: start: 20120302
  4. PYRIDOXINE HCL [Concomitant]
     Indication: PRODUCT USED FOR UNKNOWN INDICATION
     Dates: start: 20120302

REACTIONS (3)
  - ENCEPHALITIS [None]
  - FEELING ABNORMAL [None]
  - HALLUCINATION [None]
